FAERS Safety Report 5445463-8 (Version None)
Quarter: 2007Q3

REPORT INFORMATION
  Report Type: 
  Country: None (occurrence: None)
  Receive Date: 20070906
  Receipt Date: 20070904
  Transmission Date: 20080115
  Serious: Yes (Other)
  Sender: FDA-Public Use
  Company Number: US-ROXANE LABORATORIES, INC-2007-BP-20432RO

PATIENT
  Age: 54 Year
  Sex: Female

DRUGS (3)
  1. AZATHIOPRINE [Suspect]
     Indication: MYASTHENIA GRAVIS
  2. PREDNISONE TAB [Suspect]
  3. MYCOPHENOLATE MOFETIL [Suspect]

REACTIONS (9)
  - ASTHENIA [None]
  - CENTRAL NERVOUS SYSTEM LYMPHOMA [None]
  - EPSTEIN-BARR VIRUS TEST POSITIVE [None]
  - EXTENSOR PLANTAR RESPONSE [None]
  - EYELID PTOSIS [None]
  - FACIAL PARESIS [None]
  - HYPOAESTHESIA [None]
  - NEUROLOGICAL EXAMINATION ABNORMAL [None]
  - TREMOR [None]
